FAERS Safety Report 14512996 (Version 1)
Quarter: 2018Q1

REPORT INFORMATION
  Report Type: Spontaneous
  Country: US (occurrence: US)
  Receive Date: 20180209
  Receipt Date: 20180209
  Transmission Date: 20180509
  Serious: No
  Sender: FDA-Public Use
  Company Number: US-DSJP-DSU-2017-130428

PATIENT

DRUGS (1)
  1. EVOXAC [Suspect]
     Active Substance: CEVIMELINE HYDROCHLORIDE
     Indication: SJOGREN^S SYNDROME

REACTIONS (2)
  - Drug ineffective [Unknown]
  - Unevaluable event [Unknown]
